FAERS Safety Report 8583872-9 (Version None)
Quarter: 2012Q3

REPORT INFORMATION
  Report Type: 
  Country: None (occurrence: None)
  Receive Date: 20120810
  Receipt Date: 20120801
  Transmission Date: 20120928
  Serious: Yes (Hospitalization, Other)
  Sender: FDA-Public Use
  Company Number: US-009507513-1104USA02660

PATIENT

DRUGS (6)
  1. FOSAMAX [Suspect]
     Dosage: 70 MG, UNK
     Route: 048
     Dates: start: 20090701, end: 20100106
  2. VITAMIN E [Concomitant]
     Dosage: 800 U, QD
     Dates: start: 20000401, end: 20090501
  3. FOSAMAX PLUS D [Suspect]
     Indication: OSTEOPENIA
     Dosage: 70 MG, QW
     Route: 048
     Dates: start: 20070501, end: 20090601
  4. FOSAMAX [Suspect]
     Indication: OSTEOPENIA
     Dosage: 10 MG, QD
     Route: 048
     Dates: start: 20031201, end: 20060101
  5. FOSAMAX [Suspect]
     Dosage: 70 MG, QW
     Route: 048
  6. FOSAMAX PLUS D [Suspect]
     Dosage: 70 MG, QW
     Route: 048
     Dates: start: 20070501, end: 20090601

REACTIONS (60)
  - HYPERCHOLESTEROLAEMIA [None]
  - ADVERSE EVENT [None]
  - MENISCUS LESION [None]
  - DEPRESSION [None]
  - CARDIAC MURMUR [None]
  - AORTIC VALVE INCOMPETENCE [None]
  - GASTROOESOPHAGEAL REFLUX DISEASE [None]
  - FEMUR FRACTURE [None]
  - STRESS URINARY INCONTINENCE [None]
  - FALL [None]
  - NASAL CONGESTION [None]
  - SENSATION OF FOREIGN BODY [None]
  - ANXIETY [None]
  - BACK PAIN [None]
  - HYPERHIDROSIS [None]
  - MALIGNANT MELANOMA IN SITU [None]
  - PULMONARY EMBOLISM [None]
  - LICHENOID KERATOSIS [None]
  - MITRAL VALVE INCOMPETENCE [None]
  - LEFT VENTRICULAR HYPERTROPHY [None]
  - HYPOTENSION [None]
  - CYSTITIS [None]
  - LIPOMA [None]
  - VULVA CYST [None]
  - HYPERGLYCAEMIA [None]
  - LIGAMENT RUPTURE [None]
  - ADENOIDAL DISORDER [None]
  - URINARY TRACT INFECTION [None]
  - NAUSEA [None]
  - MALIGNANT MELANOMA [None]
  - TOOTH DISORDER [None]
  - MELANOCYTIC NAEVUS [None]
  - GASTROENTERITIS [None]
  - DEEP VEIN THROMBOSIS [None]
  - ADENOMATOUS POLYPOSIS COLI [None]
  - TRICUSPID VALVE INCOMPETENCE [None]
  - UPPER RESPIRATORY TRACT INFECTION [None]
  - LOW TURNOVER OSTEOPATHY [None]
  - TOOTH LOSS [None]
  - HYPOTHYROIDISM [None]
  - MACULAR DEGENERATION [None]
  - DEVICE FAILURE [None]
  - TYPE 2 DIABETES MELLITUS [None]
  - PULMONARY INFARCTION [None]
  - CARTILAGE INJURY [None]
  - BLEPHARITIS [None]
  - VULVOVAGINAL PRURITUS [None]
  - UPPER-AIRWAY COUGH SYNDROME [None]
  - CERVICOBRACHIAL SYNDROME [None]
  - EPISTAXIS [None]
  - INSOMNIA [None]
  - UTERINE LEIOMYOMA [None]
  - TONSILLAR DISORDER [None]
  - FRACTURE DELAYED UNION [None]
  - FEELING JITTERY [None]
  - OSTEOARTHRITIS [None]
  - OSTEOPOROSIS [None]
  - CATARACT [None]
  - PULMONARY HYPERTENSION [None]
  - AORTIC ARTERIOSCLEROSIS [None]
